FAERS Safety Report 23781384 (Version 2)
Quarter: 2024Q2

REPORT INFORMATION
  Report Type: Spontaneous
  Country: US (occurrence: None)
  Receive Date: 20240425
  Receipt Date: 20240621
  Transmission Date: 20240716
  Serious: Yes (Other)
  Sender: FDA-Public Use
  Company Number: 2024A092528

PATIENT
  Age: 18006 Day
  Sex: Female

DRUGS (1)
  1. SYMBICORT [Suspect]
     Active Substance: BUDESONIDE\FORMOTEROL FUMARATE DIHYDRATE
     Dosage: UNKNOWN UNKNOWN
     Route: 055

REACTIONS (9)
  - Small cell lung cancer [Unknown]
  - Metastases to central nervous system [Unknown]
  - Metastases to ovary [Unknown]
  - Metastases to lung [Unknown]
  - Visual impairment [Unknown]
  - Oropharyngeal discomfort [Unknown]
  - Product dose omission issue [Unknown]
  - Device delivery system issue [Unknown]
  - Wrong technique in product usage process [Unknown]

NARRATIVE: CASE EVENT DATE: 20240320
